FAERS Safety Report 13791584 (Version 2)
Quarter: 2019Q3

REPORT INFORMATION
  Report Type: Report from Study
  Country: US (occurrence: US)
  Receive Date: 20170725
  Receipt Date: 20190725
  Transmission Date: 20191004
  Serious: Yes (Hospitalization)
  Sender: FDA-Public Use
  Company Number: US-SA-2017SA134862

PATIENT
  Age: 54 Year
  Sex: Male

DRUGS (2)
  1. INSULIN GLARGINE [Suspect]
     Active Substance: INSULIN GLARGINE
     Dosage: 30 DF
     Route: 051
  2. INSULIN GLARGINE [Suspect]
     Active Substance: INSULIN GLARGINE
     Dosage: 70 DF
     Route: 051

REACTIONS (7)
  - Hypersensitivity [Not Recovered/Not Resolved]
  - Gallbladder disorder [Unknown]
  - Jaundice [Unknown]
  - Product dose omission [Unknown]
  - Hepatic enzyme increased [Unknown]
  - Malaise [Unknown]
  - Joint injury [Unknown]
